FAERS Safety Report 6852114-4 (Version None)
Quarter: 2010Q3

REPORT INFORMATION
  Report Type: 
  Country: None (occurrence: None)
  Receive Date: 20100717
  Receipt Date: 20080209
  Transmission Date: 20110219
  Serious: No
  Sender: FDA-Public Use
  Company Number: US-PFIZER INC-2007092448

PATIENT
  Sex: Female

DRUGS (6)
  1. CHANTIX [Suspect]
     Indication: SMOKING CESSATION THERAPY
     Route: 048
     Dates: start: 20071024, end: 20071028
  2. WELLBUTRIN [Concomitant]
  3. PROLIXIN [Concomitant]
  4. ANTIHYPERTENSIVES [Concomitant]
  5. CHOLESTEROL- AND TRIGLYCERIDE REDUCERS [Concomitant]
  6. OTHER NERVOUS SYSTEM DRUGS [Concomitant]

REACTIONS (3)
  - CHILLS [None]
  - NERVOUSNESS [None]
  - TREMOR [None]
